FAERS Safety Report 6085263-1 (Version None)
Quarter: 2009Q1

REPORT INFORMATION
  Report Type: 
  Country: None (occurrence: None)
  Receive Date: 20090220
  Receipt Date: 20090211
  Transmission Date: 20090719
  Serious: Yes (Other)
  Sender: FDA-Public Use
  Company Number: US-NOVOPROD-283701

PATIENT
  Sex: Female
  Weight: 57.143 kg

DRUGS (13)
  1. VAGIFEM [Suspect]
     Indication: MENOPAUSE
     Dosage: 25 UG, UNK
     Route: 067
     Dates: start: 20021101, end: 20021101
  2. PREMARIN [Suspect]
     Indication: MENOPAUSE
     Dosage: .625 MG, UNK
     Route: 048
     Dates: start: 19950101, end: 19970101
  3. PROVERA [Suspect]
     Indication: MENOPAUSE
     Dosage: 10 MG, UNK
     Route: 048
     Dates: start: 19950101, end: 19970101
  4. CLIMARA [Suspect]
     Indication: MENOPAUSE
     Dosage: .05 MG, UNK
     Route: 062
     Dates: start: 19970101, end: 19970101
  5. MEDROXYPROGESTERONE ACETATE [Suspect]
     Indication: MENOPAUSE
     Dosage: 10 MG, UNK
     Route: 048
     Dates: start: 19970101, end: 19970101
  6. PREMPRO [Suspect]
     Indication: MENOPAUSE
     Dosage: 0.625/2.5 MG, UNK
     Route: 048
     Dates: start: 19970101, end: 20020101
  7. PREMARIN [Suspect]
     Indication: MENOPAUSE
     Route: 067
     Dates: start: 20001001, end: 20020101
  8. ESTRING [Suspect]
     Indication: MENOPAUSE
     Dosage: 2 MG, UNK
     Dates: start: 20030101, end: 20030101
  9. ESTRACE [Suspect]
     Indication: MENOPAUSE
     Route: 067
     Dates: start: 20020701, end: 20040101
  10. XANAX [Concomitant]
     Indication: ANXIETY
  11. AMBIEN [Concomitant]
     Indication: SLEEP DISORDER
     Dates: start: 20041001
  12. PREVACID [Concomitant]
     Indication: REFLUX GASTRITIS
     Dates: start: 20020101
  13. FOSAMAX [Concomitant]
     Indication: OSTEOPENIA
     Dates: start: 19970101

REACTIONS (1)
  - BREAST CANCER [None]
